FAERS Safety Report 20728907 (Version 2)
Quarter: 2025Q2

REPORT INFORMATION
  Report Type: Spontaneous
  Country: PT (occurrence: PT)
  Receive Date: 20220420
  Receipt Date: 20250611
  Transmission Date: 20250717
  Serious: Yes (Hospitalization, Other)
  Sender: AUROBINDO
  Company Number: PT-MLMSERVICE-20220404-3469686-1

PATIENT
  Age: 55 Year
  Sex: Male

DRUGS (1)
  1. METFORMIN [Suspect]
     Active Substance: METFORMIN HYDROCHLORIDE
     Indication: Type 2 diabetes mellitus
     Route: 065

REACTIONS (4)
  - Liver disorder [Recovering/Resolving]
  - Vitamin B12 deficiency [Recovering/Resolving]
  - Pernicious anaemia [Recovering/Resolving]
  - Thrombotic microangiopathy [Recovering/Resolving]
